APPROVED DRUG PRODUCT: TRIAMCINOLONE ACETONIDE
Active Ingredient: TRIAMCINOLONE ACETONIDE
Strength: 0.1%
Dosage Form/Route: CREAM;TOPICAL
Application: A087991 | Product #001
Applicant: PHARMADERM DIV ALTANA INC
Approved: Jul 7, 1983 | RLD: No | RS: No | Type: DISCN